FAERS Safety Report 8094677-X (Version None)
Quarter: 2012Q1

REPORT INFORMATION
  Report Type: 
  Country: None (occurrence: None)
  Receive Date: 20120129
  Receipt Date: 20111219
  Transmission Date: 20120608
  Serious: No
  Sender: FDA-Public Use
  Company Number: US-ABBOTT-11P-163-0884950-00

PATIENT
  Age: 58 Year
  Sex: Female

DRUGS (8)
  1. METHOTREXATE [Concomitant]
     Indication: RHEUMATOID ARTHRITIS
  2. SYNTHROID [Concomitant]
     Indication: THYROID DISORDER
  3. PRAVASTATIN [Concomitant]
     Indication: BLOOD CHOLESTEROL
  4. HUMIRA [Suspect]
     Indication: RHEUMATOID ARTHRITIS
     Dates: start: 20110901
  5. FOLIC ACID [Concomitant]
     Indication: PRODUCT USED FOR UNKNOWN INDICATION
     Dosage: EXCEPT ON THE DAY OF METHOTREXATE
  6. BENICAR [Concomitant]
     Indication: HYPERTENSION
  7. HUMIRA [Suspect]
     Indication: RHEUMATOID ARTHRITIS
     Dates: start: 20111217
  8. SINGULAIR [Concomitant]
     Indication: ASTHMA

REACTIONS (5)
  - INJECTION SITE REACTION [None]
  - INJECTION SITE INDURATION [None]
  - INJECTION SITE PRURITUS [None]
  - INJECTION SITE ERYTHEMA [None]
  - INJECTION SITE PAIN [None]
